FAERS Safety Report 20599260 (Version 1)
Quarter: 2022Q1

REPORT INFORMATION
  Report Type: Spontaneous
  Country: US (occurrence: US)
  Receive Date: 20220315
  Receipt Date: 20220315
  Transmission Date: 20220423
  Serious: No
  Sender: FDA-Public Use
  Company Number: US-SA-SAC20220311000593

PATIENT
  Sex: Male

DRUGS (9)
  1. DUPIXENT [Suspect]
     Active Substance: DUPILUMAB
     Indication: Asthma
     Dosage: 200 MG, QOW
     Route: 058
     Dates: start: 20211208
  2. EPINEPHRINE [Concomitant]
     Active Substance: EPINEPHRINE
     Dosage: 0.3MG/0.3 AUTO INJCT
  3. VENTOLIN HFA [Concomitant]
     Active Substance: ALBUTEROL SULFATE
     Dosage: VENTOLIN HFA 90 MCG HFA AER AD
  4. IRON [Concomitant]
     Active Substance: IRON
     Dosage: IRON 325(65) MG TABLET
  5. VITAMINS [Concomitant]
     Active Substance: VITAMINS
  6. VITAMIN D3 [Concomitant]
     Active Substance: CHOLECALCIFEROL
     Dosage: VITAMIN D3 10 MCG TABLET
  7. CLARITIN [Concomitant]
     Active Substance: LORATADINE
     Dosage: CLARITIN 10 MG TABLET
  8. ZYRTEC [Concomitant]
     Active Substance: CETIRIZINE HYDROCHLORIDE
     Dosage: ZYRTEC 10 MG TABLET
  9. COVID-19 VACCINE [Concomitant]

REACTIONS (1)
  - Pityriasis [Unknown]

NARRATIVE: CASE EVENT DATE: 20220101
